FAERS Safety Report 4549412-6 (Version None)
Quarter: 2005Q1

REPORT INFORMATION
  Report Type: 
  Country: None (occurrence: None)
  Receive Date: 20050111
  Receipt Date: 20040928
  Transmission Date: 20050727
  Serious: Yes (Other)
  Sender: FDA-Public Use
  Company Number: 200413586FR

PATIENT
  Age: 77 Year
  Sex: Male
  Weight: 60 kg

DRUGS (5)
  1. LANTUS [Suspect]
     Indication: DIABETES MELLITUS NON-INSULIN-DEPENDENT
     Route: 058
     Dates: start: 20031120
  2. DIAMICRON [Suspect]
     Indication: DIABETES MELLITUS NON-INSULIN-DEPENDENT
  3. ATHYMIL [Concomitant]
     Route: 048
  4. FLECAINE [Concomitant]
     Indication: SINUS ARRHYTHMIA
     Route: 048
     Dates: start: 19990101
  5. TANAKAN [Concomitant]
     Indication: VERTIGO
     Route: 048
     Dates: start: 20040101

REACTIONS (3)
  - BONE MARROW DEPRESSION [None]
  - NEUTROPENIA [None]
  - THROMBOCYTOPENIA [None]
